FAERS Safety Report 14661674 (Version 1)
Quarter: 2018Q1

REPORT INFORMATION
  Report Type: Spontaneous
  Country: US (occurrence: US)
  Receive Date: 20180320
  Receipt Date: 20180320
  Transmission Date: 20180509
  Serious: No
  Sender: FDA-Public Use
  Company Number: US-NEPHRON PHARMACEUTICALS CORPORATION-2044158

PATIENT
  Age: 79 Year
  Sex: Female
  Weight: 63.18 kg

DRUGS (4)
  1. IPRATROPIUM BROMIDE INHALATION SOLUTION, 0.02% [Suspect]
     Active Substance: IPRATROPIUM BROMIDE
     Indication: CHRONIC OBSTRUCTIVE PULMONARY DISEASE
     Route: 055
     Dates: start: 20180317
  2. DULERA [Concomitant]
     Active Substance: FORMOTEROL FUMARATE DIHYDRATE\MOMETASONE FUROATE
  3. PROAIR HFA [Concomitant]
     Active Substance: ALBUTEROL SULFATE
  4. FLOVENT HFA [Concomitant]
     Active Substance: FLUTICASONE PROPIONATE

REACTIONS (1)
  - Chest discomfort [Recovered/Resolved]

NARRATIVE: CASE EVENT DATE: 20180317
